FAERS Safety Report 8130954 (Version 4)
Quarter: 2013Q2

REPORT INFORMATION
  Report Type: Report from Study
  Country: ES (occurrence: ES)
  Receive Date: 20110912
  Receipt Date: 20130405
  Transmission Date: 20140414
  Serious: Yes (Life-Threatening, Hospitalization)
  Sender: FDA-Public Use
  Company Number: ES-CELGENEUS-144-21880-11081157

PATIENT
  Age: 57 Year
  Sex: Male
  Weight: 85 kg

DRUGS (17)
  1. REVLIMID [Suspect]
     Indication: PLASMA CELL MYELOMA
     Dosage: 25 MILLIGRAM
     Route: 048
     Dates: start: 20110615, end: 20110705
  2. REVLIMID [Suspect]
     Dosage: 25 MILLIGRAM
     Route: 048
     Dates: start: 20110713, end: 20110802
  3. DEXAMETHASONE [Suspect]
     Indication: PLASMA CELL MYELOMA
     Route: 065
     Dates: start: 20110615, end: 20110706
  4. DEXAMETHASONE [Suspect]
     Route: 065
     Dates: start: 20110713, end: 20110803
  5. ADIRO [Concomitant]
     Indication: ANTICOAGULANT THERAPY
     Dosage: 100 MILLIGRAM
     Route: 048
     Dates: start: 20110712, end: 20110916
  6. ADIRO [Concomitant]
     Indication: ANTIPLATELET THERAPY
  7. CIPROFLOXACIN [Concomitant]
     Indication: ANTIBIOTIC PROPHYLAXIS
     Dosage: 500 MILLIGRAM
     Route: 048
     Dates: start: 20110712, end: 20110916
  8. EPREX [Concomitant]
     Indication: ANAEMIA
     Route: 041
     Dates: start: 20110712
  9. LANSOPRAZOL [Concomitant]
     Indication: GASTRITIS PROPHYLAXIS
     Dosage: 15 MILLIGRAM
     Route: 048
     Dates: start: 20110712, end: 20110916
  10. LANSOPRAZOL [Concomitant]
     Dosage: 15 MILLIGRAM
     Route: 048
     Dates: start: 20110615, end: 20110916
  11. NOCTAMID [Concomitant]
     Indication: PRODUCT USED FOR UNKNOWN INDICATION
     Dosage: 1 MILLIGRAM
     Route: 048
     Dates: start: 2011
  12. NOCTAMID [Concomitant]
     Indication: INSOMNIA
  13. SANDOZ CALCIUM [Concomitant]
     Indication: OSTEOPOROSIS PROPHYLAXIS
     Dosage: 500 MILLIGRAM
     Route: 048
  14. SEGURIL [Concomitant]
     Indication: HYPOPROTEINAEMIA
     Dosage: 20 MILLIGRAM
     Route: 041
     Dates: start: 20110812, end: 20110814
  15. SEGURIL [Concomitant]
     Indication: OEDEMA
     Dosage: 40 MILLIGRAM
     Route: 048
     Dates: start: 20110814, end: 20110822
  16. DORMICUM [Concomitant]
     Indication: ANAESTHESIA
     Dosage: 2.5 MILLIGRAM
     Route: 041
     Dates: start: 20110814, end: 20110814
  17. ALBUMIN [Concomitant]
     Indication: HYPOPROTEINAEMIA
     Dosage: 100 MILLILITER
     Route: 041
     Dates: start: 20110815, end: 20110818

REACTIONS (3)
  - Interstitial lung disease [Recovered/Resolved with Sequelae]
  - Pyrexia [Not Recovered/Not Resolved]
  - Anaemia [Not Recovered/Not Resolved]
